FAERS Safety Report 8553515-9 (Version None)
Quarter: 2012Q3

REPORT INFORMATION
  Report Type: 
  Country: None (occurrence: None)
  Receive Date: 20120719
  Receipt Date: 20120713
  Transmission Date: 20120928
  Serious: Yes (Hospitalization)
  Sender: FDA-Public Use
  Company Number: 2012032825

PATIENT
  Age: 77 Year
  Sex: Male
  Weight: 87.0906 kg

DRUGS (32)
  1. DIPHENHYDRAMINE HCL [Concomitant]
  2. PROBIOTIC (LACTOBACILLUS REUTERI) [Concomitant]
  3. RESTASIS [Concomitant]
  4. DITROPAN [Concomitant]
  5. CRESTOR [Concomitant]
  6. ALBUTEROL [Concomitant]
  7. ZANAFLEX [Concomitant]
  8. OXYCONTIN [Concomitant]
  9. EPIPEN [Concomitant]
  10. LYRICA [Concomitant]
  11. ICAPS (ICAPS) [Concomitant]
  12. SPIRIVA [Concomitant]
  13. DEXAMETHASONE SODIUM PHOSPHATE [Concomitant]
  14. MIRALAX [Concomitant]
  15. ARICEPT [Concomitant]
  16. QVAR [Concomitant]
  17. LIDOCAINE PRILOCAINE (EMLA /00675501/) [Concomitant]
  18. MULTIVITAMIN [Concomitant]
  19. HIZENTRA [Suspect]
  20. OXYGEN (OXYGEN) [Concomitant]
  21. PROZAC [Concomitant]
  22. THERA TEARS (CARMELLOSE) [Concomitant]
  23. DOMPERIDONE (DOMPERIDONE) [Concomitant]
  24. HIZENTRA [Suspect]
     Indication: IMMUNODEFICIENCY COMMON VARIABLE
     Dosage: SEE IMAGE
     Route: 058
  25. OXYCONTIN [Concomitant]
  26. LMX (LIDOCAINE) [Concomitant]
  27. REMERON [Concomitant]
  28. POTASSIUM (POTASSIUM) [Concomitant]
  29. ISOSORBIDE DINITRATE [Concomitant]
  30. NEXIUM [Concomitant]
  31. ZANTAC [Concomitant]
  32. WARFARIN SODIUM [Concomitant]

REACTIONS (2)
  - PNEUMONIA [None]
  - FATIGUE [None]
